FAERS Safety Report 24653065 (Version 1)
Quarter: 2024Q4

REPORT INFORMATION
  Report Type: Spontaneous
  Country: FR (occurrence: FR)
  Receive Date: 20241122
  Receipt Date: 20241122
  Transmission Date: 20250114
  Serious: Yes (Hospitalization, Other)
  Sender: PFIZER
  Company Number: None

PATIENT
  Age: 69 Year
  Sex: Male
  Weight: 69 kg

DRUGS (4)
  1. CARBOPLATIN [Suspect]
     Active Substance: CARBOPLATIN
     Indication: Lung adenocarcinoma stage IV
     Dosage: 399 MG, 5 AUC
     Route: 042
     Dates: start: 20231219, end: 20240305
  2. PEMETREXED [Suspect]
     Active Substance: PEMETREXED
     Indication: Lung adenocarcinoma stage IV
     Dosage: 500 MG/M2, CYCLIC (1 CURE EVERY 21 DAYS)
     Route: 042
     Dates: start: 20231219, end: 20240206
  3. PEMETREXED [Suspect]
     Active Substance: PEMETREXED
     Dosage: 400 MG/M2, CYCLIC, 1 CURE EVERY 21 DAYS REDUCTION OF THE DOSE (80% THEORETICAL DOSE)
     Route: 042
     Dates: start: 20240305, end: 20240305
  4. EMEND [Suspect]
     Active Substance: APREPITANT
     Indication: Chemotherapy side effect prophylaxis
     Dosage: 125 MG ON D1, 80 MG ON D2 AND D3, 21-DAY CYLCES
     Route: 048
     Dates: start: 20231219, end: 20240307

REACTIONS (2)
  - Stevens-Johnson syndrome [Recovered/Resolved]
  - Pancytopenia [Recovered/Resolved]

NARRATIVE: CASE EVENT DATE: 20240221
